FAERS Safety Report 21531333 (Version 1)
Quarter: 2022Q4

REPORT INFORMATION
  Report Type: Spontaneous
  Country: US (occurrence: None)
  Receive Date: 20221028
  Receipt Date: 20221028
  Transmission Date: 20230113
  Serious: Yes (Hospitalization)
  Sender: FDA-Public Use
  Company Number: None

PATIENT
  Age: 49 Year
  Sex: Male

DRUGS (1)
  1. BUPROPION [Suspect]
     Active Substance: BUPROPION
     Dosage: 150 MG EVERY DAY PO?
     Route: 048
     Dates: start: 20220120, end: 20220121

REACTIONS (3)
  - Swelling face [None]
  - Rash erythematous [None]
  - Angioedema [None]

NARRATIVE: CASE EVENT DATE: 20220121
